FAERS Safety Report 4654572-2 (Version None)
Quarter: 2005Q2

REPORT INFORMATION
  Report Type: 
  Country: None (occurrence: None)
  Receive Date: 20050506
  Receipt Date: 20050426
  Transmission Date: 20051028
  Serious: Yes (Other)
  Sender: FDA-Public Use
  Company Number: AU-BRISTOL-MYERS SQUIBB COMPANY-12957635

PATIENT
  Sex: Male

DRUGS (2)
  1. EFAVIRENZ CAPS [Suspect]
     Route: 048
  2. COMBIVIR [Concomitant]

REACTIONS (2)
  - ADENOCARCINOMA [None]
  - BLOOD CORTISOL INCREASED [None]
